FAERS Safety Report 11430639 (Version 4)
Quarter: 2015Q4

REPORT INFORMATION
  Report Type: Spontaneous
  Country: US (occurrence: US)
  Receive Date: 20150828
  Receipt Date: 20151027
  Transmission Date: 20160304
  Serious: No
  Sender: FDA-Public Use
  Company Number: PHEH2015US010961

PATIENT
  Sex: Female

DRUGS (6)
  1. ESTRADIOL. [Suspect]
     Active Substance: ESTRADIOL
     Dosage: UNK
     Route: 065
     Dates: start: 201502
  2. VIVELLE-DOT [Suspect]
     Active Substance: ESTRADIOL
     Indication: PRODUCT USED FOR UNKNOWN INDICATION
     Dosage: UNK
     Route: 065
  3. ESTRADIOL. [Suspect]
     Active Substance: ESTRADIOL
     Indication: PRODUCT USED FOR UNKNOWN INDICATION
     Dosage: UNK
     Route: 065
     Dates: start: 201501
  4. ESTRADIOL. [Suspect]
     Active Substance: ESTRADIOL
     Dosage: UNK
     Route: 065
     Dates: start: 201505
  5. VIVELLE-DOT [Suspect]
     Active Substance: ESTRADIOL
     Dosage: UNK
     Route: 065
  6. VIVELLE-DOT [Suspect]
     Active Substance: ESTRADIOL
     Dosage: UNK
     Route: 065

REACTIONS (9)
  - Vulvovaginal dryness [Recovered/Resolved]
  - Headache [Recovered/Resolved]
  - Dry eye [Recovered/Resolved]
  - Headache [Recovered/Resolved]
  - Vulvovaginal dryness [Recovered/Resolved]
  - Dry eye [Recovered/Resolved]
  - Headache [Recovered/Resolved]
  - Dry eye [Recovered/Resolved]
  - Vulvovaginal dryness [Recovered/Resolved]

NARRATIVE: CASE EVENT DATE: 201501
